FAERS Safety Report 17502503 (Version 4)
Quarter: 2020Q3

REPORT INFORMATION
  Report Type: Report from Study
  Country: FR (occurrence: FR)
  Receive Date: 20200305
  Receipt Date: 20200717
  Transmission Date: 20201102
  Serious: Yes (Other)
  Sender: FDA-Public Use
  Company Number: FR-TAIHO ONCOLOGY  INC-IM-2020-00267

PATIENT
  Age: 68 Year
  Sex: Female
  Weight: 64 kg

DRUGS (9)
  1. CEFPODOXIME [Concomitant]
     Active Substance: CEFPODOXIME
     Indication: NASOPHARYNGITIS
     Dosage: 1 DF, BID
     Route: 065
     Dates: start: 20200109, end: 20200113
  2. GANFORT [Concomitant]
     Active Substance: BIMATOPROST\TIMOLOL
     Indication: GLAUCOMA
     Dosage: 1 DF, QD
     Route: 050
     Dates: start: 20190101
  3. AMOXICILLIN. [Concomitant]
     Active Substance: AMOXICILLIN
     Indication: NASOPHARYNGITIS
     Dosage: 2 DF, TID
     Route: 065
     Dates: start: 20191204, end: 20191208
  4. LONSURF [Suspect]
     Active Substance: TIPIRACIL HYDROCHLORIDE\TRIFLURIDINE
     Dosage: 60 MG (35 MG/M2) BID, ON DAY 1?5 AND 8?12 OF EACH 28 DAYS CYCLE
     Route: 048
     Dates: end: 20200112
  5. CLARITHROMYCIN. [Concomitant]
     Active Substance: CLARITHROMYCIN
     Dosage: 1 DF, BID
     Route: 065
     Dates: start: 20191214, end: 20191221
  6. SOLUPRED [Concomitant]
     Dosage: 2 DF, QD
     Route: 065
     Dates: start: 20191214, end: 20191216
  7. ADVIL [Concomitant]
     Active Substance: IBUPROFEN
     Dosage: 1 DF, TID
     Route: 065
     Dates: start: 20200109, end: 20200113
  8. LONSURF [Suspect]
     Active Substance: TIPIRACIL HYDROCHLORIDE\TRIFLURIDINE
     Indication: COLORECTAL CANCER METASTATIC
     Dosage: 60 MG (35 MG/M2) BID, ON DAY 1?5 AND 8?12 OF EACH 28 DAYS CYCLE
     Route: 048
     Dates: start: 20190920, end: 20191001
  9. LONSURF [Suspect]
     Active Substance: TIPIRACIL HYDROCHLORIDE\TRIFLURIDINE
     Dosage: 60 MG (35 MG/M2) BID, ON DAY 1?5 AND 8?12 OF EACH 28 DAYS CYCLE
     Route: 048
     Dates: start: 20191022, end: 20191102

REACTIONS (3)
  - Asthenia [Unknown]
  - Hepatitis cholestatic [Not Recovered/Not Resolved]
  - Nausea [Unknown]

NARRATIVE: CASE EVENT DATE: 20200205
